FAERS Safety Report 4758992-7 (Version None)
Quarter: 2005Q3

REPORT INFORMATION
  Report Type: 
  Country: None (occurrence: None)
  Receive Date: 20050826
  Receipt Date: 20050818
  Transmission Date: 20060218
  Serious: No
  Sender: FDA-Public Use
  Company Number: SP00463

PATIENT
  Age: 55 Year
  Sex: Female
  Weight: 77.1115 kg

DRUGS (1)
  1. COLAZAL [Suspect]
     Indication: COLITIS ULCERATIVE
     Dosage: 2.25G/TID, ORAL
     Route: 048
     Dates: start: 20050628, end: 20050713

REACTIONS (4)
  - GASTROINTESTINAL OBSTRUCTION [None]
  - INTESTINAL STENOSIS [None]
  - MEDICAL DEVICE COMPLICATION [None]
  - SCAR [None]
